FAERS Safety Report 5482723-9 (Version None)
Quarter: 2007Q4

REPORT INFORMATION
  Report Type: 
  Country: None (occurrence: None)
  Receive Date: 20071011
  Receipt Date: 20071001
  Transmission Date: 20080405
  Serious: Yes (Other)
  Sender: FDA-Public Use
  Company Number: BE-PFIZER INC-2007083149

PATIENT
  Age: 21 Year
  Sex: Female
  Weight: 76 kg

DRUGS (4)
  1. GENOTROPIN [Suspect]
     Indication: HYPOPITUITARISM
     Route: 058
  2. DESMOPRESSIN ACETATE [Concomitant]
     Route: 042
     Dates: start: 19911007
  3. LEVOTHYROXINE SODIUM [Concomitant]
     Route: 048
     Dates: start: 19920520
  4. HYDROCORTISONE [Concomitant]
     Route: 048
     Dates: start: 20020101

REACTIONS (2)
  - GERM CELL CANCER [None]
  - NEOPLASM RECURRENCE [None]
